FAERS Safety Report 5069550-1 (Version None)
Quarter: 2006Q3

REPORT INFORMATION
  Report Type: 
  Country: None (occurrence: None)
  Receive Date: 20060803
  Receipt Date: 20060724
  Transmission Date: 20061208
  Serious: Yes (Hospitalization)
  Sender: FDA-Public Use
  Company Number: HQWYE388426JUL06

PATIENT
  Sex: Female

DRUGS (6)
  1. ENBREL [Suspect]
     Indication: RHEUMATOID ARTHRITIS
     Route: 058
     Dates: start: 20060516, end: 20060620
  2. ISCOTIN [Concomitant]
     Dosage: UNKNOWN
     Route: 048
  3. MOBIC [Concomitant]
     Dosage: UNKNOWN
     Route: 048
  4. PREDNISOLONE [Concomitant]
     Dosage: UNKNOWN
     Route: 048
  5. RHEUMATREX [Concomitant]
     Dosage: UNKNOWN
     Route: 048
  6. PYRIDOXAL PHOSPHATE [Concomitant]
     Dosage: UNKNOWN
     Route: 048

REACTIONS (1)
  - NEPHROTIC SYNDROME [None]
